FAERS Safety Report 7947627 (Version 2)
Quarter: 2012Q4

REPORT INFORMATION
  Report Type: 
  Country: US (occurrence: US)
  Receive Date: 20110517
  Receipt Date: 20120914
  Transmission Date: 20130627
  Serious: Yes (Hospitalization)
  Sender: FDA-Public Use
  Company Number: US-US-EMD SERONO, INC.-7058699

PATIENT
  Age: 12 None
  Sex: Female

DRUGS (1)
  1. SAIZEN [Suspect]
     Indication: TURNER^S SYNDROME
     Dates: start: 20100812

REACTIONS (3)
  - Suicidal ideation [Recovering/Resolving]
  - Emotional distress [Recovering/Resolving]
  - Abnormal behaviour [Recovering/Resolving]
